FAERS Safety Report 7210527-5 (Version None)
Quarter: 2011Q1

REPORT INFORMATION
  Report Type: 
  Country: None (occurrence: None)
  Receive Date: 20110105
  Receipt Date: 20110103
  Transmission Date: 20110831
  Serious: Yes (Other)
  Sender: FDA-Public Use
  Company Number: DK-ROCHE-748783

PATIENT
  Sex: Female
  Weight: 72 kg

DRUGS (7)
  1. PRILOSEC [Concomitant]
     Route: 048
  2. FOLIMET [Concomitant]
     Route: 048
  3. ROACTEMRA [Suspect]
     Route: 042
     Dates: start: 20100517
  4. ROACTEMRA [Suspect]
     Indication: RHEUMATOID ARTHRITIS
     Route: 042
     Dates: start: 20090511, end: 20100222
  5. NORVASC [Concomitant]
     Route: 048
  6. HJERTEMAGNYL [Concomitant]
     Route: 048
  7. UNIKALK FORTE [Concomitant]
     Route: 048

REACTIONS (3)
  - CONJUNCTIVITIS [None]
  - EPISCLERITIS [None]
  - SCLERITIS [None]
